FAERS Safety Report 6349208-9 (Version None)
Quarter: 2009Q3

REPORT INFORMATION
  Report Type: 
  Country: None (occurrence: None)
  Receive Date: 20090911
  Receipt Date: 20090903
  Transmission Date: 20100115
  Serious: Yes (Hospitalization)
  Sender: FDA-Public Use
  Company Number: JP-NOVOPROD-291314

PATIENT
  Age: 62 Year
  Sex: Male

DRUGS (1)
  1. NOVORAPID CHU PENFILL [Suspect]
     Indication: TYPE 2 DIABETES MELLITUS
     Dosage: UNK

REACTIONS (4)
  - ANTI-INSULIN ANTIBODY INCREASED [None]
  - BLOOD GLUCOSE INCREASED [None]
  - BLOOD INSULIN INCREASED [None]
  - HYPOGLYCAEMIA [None]
